FAERS Safety Report 8306672-3 (Version None)
Quarter: 2012Q1

REPORT INFORMATION
  Report Type: 
  Country: None (occurrence: None)
  Receive Date: 20120326
  Receipt Date: 20110428
  Transmission Date: 20120608
  Serious: Yes (Hospitalization)
  Sender: FDA-Public Use
  Company Number: PHHY2011US35783

PATIENT
  Sex: Female

DRUGS (1)
  1. TASIGNA [Suspect]
     Indication: CHRONIC MYELOID LEUKAEMIA
     Dosage: 200 MG, EVERY 12 HOURS, ORAL
     Route: 048

REACTIONS (3)
  - FATIGUE [None]
  - RASH GENERALISED [None]
  - BLOOD PRESSURE INCREASED [None]
